FAERS Safety Report 26093725 (Version 2)
Quarter: 2025Q4

REPORT INFORMATION
  Report Type: Spontaneous
  Country: EU (occurrence: EU)
  Receive Date: 20251126
  Receipt Date: 20251224
  Transmission Date: 20260118
  Serious: Yes (Other)
  Sender: AMGEN
  Company Number: EU-AMGEN-ESPSP2025231057

PATIENT
  Age: 61 Year
  Sex: Male

DRUGS (2)
  1. NPLATE [Suspect]
     Active Substance: ROMIPLOSTIM
     Indication: Product used for unknown indication
     Dosage: 1000 MICROGRAM
     Route: 065
     Dates: start: 20250630
  2. NPLATE [Suspect]
     Active Substance: ROMIPLOSTIM
     Dosage: 1000 MICROGRAM
     Route: 065
     Dates: end: 2025

REACTIONS (2)
  - Platelet count increased [Recovering/Resolving]
  - Pain in extremity [Recovered/Resolved]

NARRATIVE: CASE EVENT DATE: 20250101
